FAERS Safety Report 7520729-6 (Version None)
Quarter: 2011Q2

REPORT INFORMATION
  Report Type: 
  Country: None (occurrence: None)
  Receive Date: 20110603
  Receipt Date: 20101207
  Transmission Date: 20111010
  Serious: Yes (Hospitalization, Other)
  Sender: FDA-Public Use
  Company Number: JP-BAYER-200913034BYL

PATIENT
  Age: 67 Year
  Sex: Female
  Weight: 45 kg

DRUGS (7)
  1. RABEPRAZOLE SODIUM [Concomitant]
     Dosage: 10 MG (DAILY DOSE), , ORAL
     Route: 048
  2. PURSENNID [Concomitant]
     Dosage: 12 MG (DAILY DOSE), , ORAL
     Route: 048
  3. CANDESARTAN CILEXETIL [Concomitant]
     Dosage: 12 MG (DAILY DOSE), , ORAL
     Route: 048
  4. MUCOSTA [Concomitant]
     Dosage: 300 MG (DAILY DOSE), , ORAL
     Route: 048
     Dates: start: 20090803, end: 20090805
  5. NEXAVAR [Suspect]
     Indication: RENAL CELL CARCINOMA
     Route: 048
     Dates: start: 20090722, end: 20090801
  6. NEXAVAR [Suspect]
     Route: 048
     Dates: start: 20090820, end: 20090821
  7. LOXONIN [Concomitant]
     Dosage: 180 MG (DAILY DOSE), , ORAL
     Route: 048
     Dates: start: 20090803, end: 20090805

REACTIONS (3)
  - ERYTHEMA MULTIFORME [None]
  - ANAPHYLACTIC SHOCK [None]
  - HYPOTHYROIDISM [None]
